FAERS Safety Report 7579951-5 (Version None)
Quarter: 2011Q2

REPORT INFORMATION
  Report Type: 
  Country: None (occurrence: None)
  Receive Date: 20110629
  Receipt Date: 20110617
  Transmission Date: 20111010
  Serious: Yes (Hospitalization)
  Sender: FDA-Public Use
  Company Number: US-JNJFOC-20101104775

PATIENT
  Sex: Female
  Weight: 44.5 kg

DRUGS (9)
  1. MERCAPTOPURINE [Concomitant]
  2. REMICADE [Suspect]
     Route: 042
     Dates: start: 20100506
  3. METHOTREXATE [Concomitant]
  4. GROWTH HORMONE [Concomitant]
  5. PROBIOTICS [Concomitant]
  6. PREDNISONE [Concomitant]
     Route: 048
  7. ANTIBIOTICS [Concomitant]
     Indication: INFLAMMATORY BOWEL DISEASE
  8. CORTICOSTEROIDS [Concomitant]
     Route: 054
  9. REMICADE [Suspect]
     Indication: CROHN'S DISEASE
     Route: 042
     Dates: start: 20090430

REACTIONS (1)
  - VARICELLA [None]
